FAERS Safety Report 5702463 (Version 5)
Quarter: 2014Q1

REPORT INFORMATION
  Report Type: Spontaneous
  Country: GB (occurrence: GB)
  Receive Date: 20041215
  Receipt Date: 20140127
  Transmission Date: 20141002
  Serious: Yes (Life-Threatening, Hospitalization)
  Sender: FDA-Public Use
  Company Number: GB-JNJFOC-20041202709

PATIENT
  Age: 47 Year
  Sex: Female
  Weight: 65.77 kg

DRUGS (4)
  1. IBUPROFEN [Suspect]
     Indication: OSTEOARTHRITIS
     Dosage: 1200-1600MG DAILY
     Route: 048
     Dates: start: 200401, end: 20041109
  2. BENDROFLUMETHIAZIDE [Concomitant]
     Indication: HYPERTENSION
     Route: 048
     Dates: start: 200201, end: 20041110
  3. VITAMIN C [Concomitant]
     Indication: PRODUCT USED FOR UNKNOWN INDICATION
     Route: 048
     Dates: start: 200406, end: 20041109
  4. MULTIVITAMINS [Concomitant]
     Indication: SELF-MEDICATION
     Route: 048
     Dates: start: 200406, end: 20041109

REACTIONS (4)
  - Immune thrombocytopenic purpura [Not Recovered/Not Resolved]
  - Haemorrhage [Not Recovered/Not Resolved]
  - Vomiting [Not Recovered/Not Resolved]
  - Overdose [Not Recovered/Not Resolved]
